FAERS Safety Report 7361154-0 (Version None)
Quarter: 2011Q1

REPORT INFORMATION
  Report Type: 
  Country: None (occurrence: None)
  Receive Date: 20110318
  Receipt Date: 20110314
  Transmission Date: 20110831
  Serious: Yes (Life-Threatening, Hospitalization, Other)
  Sender: FDA-Public Use
  Company Number: AT-ELI_LILLY_AND_COMPANY-AT201102006286

PATIENT
  Age: 43 Year
  Sex: Female

DRUGS (5)
  1. EFFIENT [Suspect]
     Dosage: 10 MG, UNKNOWN, MAINTENANCE DOSE
     Route: 065
     Dates: end: 20110131
  2. HEPARIN SODIUM [Concomitant]
     Dosage: UNK, UNK
  3. ASPIRIN [Concomitant]
     Dosage: 100 MG, 2/D
     Route: 065
  4. FRAGMIN [Concomitant]
     Dosage: 2 X 7500 IE, 2/D
     Route: 058
  5. EFFIENT [Suspect]
     Indication: ACUTE MYOCARDIAL INFARCTION
     Dosage: 60 MG, LOADING DOSE
     Route: 065
     Dates: start: 20110123

REACTIONS (3)
  - SHOCK HAEMORRHAGIC [None]
  - RENAL NEOPLASM [None]
  - RENAL HAEMORRHAGE [None]
